FAERS Safety Report 18530431 (Version 1)
Quarter: 2020Q4

REPORT INFORMATION
  Report Type: Other
  Country: CN (occurrence: CN)
  Receive Date: 20201120
  Receipt Date: 20201120
  Transmission Date: 20210114
  Serious: Yes (Other)
  Sender: FDA-Public Use
  Company Number: CN-ROCHE-2713347

PATIENT

DRUGS (2)
  1. CAPECITABINE. [Suspect]
     Active Substance: CAPECITABINE
     Indication: GASTRIC CANCER STAGE III
     Dosage: DAY 1-14
     Route: 048
  2. OXALIPLATIN. [Suspect]
     Active Substance: OXALIPLATIN
     Indication: GASTRIC CANCER STAGE III
     Dosage: DAY1
     Route: 041

REACTIONS (8)
  - White blood cell count decreased [Unknown]
  - Platelet count decreased [Unknown]
  - Vomiting [Unknown]
  - Hepatotoxicity [Unknown]
  - Nephropathy toxic [Unknown]
  - Granulocyte count decreased [Unknown]
  - Neurotoxicity [Unknown]
  - Nausea [Unknown]
